FAERS Safety Report 8479300-4 (Version None)
Quarter: 2012Q2

REPORT INFORMATION
  Report Type: 
  Country: None (occurrence: None)
  Receive Date: 20120629
  Receipt Date: 20120625
  Transmission Date: 20120825
  Serious: Yes (Life-Threatening, Hospitalization)
  Sender: FDA-Public Use
  Company Number: FR-GLAXOSMITHKLINE-B0806688A

PATIENT
  Sex: Female

DRUGS (8)
  1. EUPRESSYL [Concomitant]
     Indication: HYPERTENSION
     Dosage: 1UNIT TWICE PER DAY
     Route: 048
  2. EXFORGE [Concomitant]
     Indication: HYPERTENSION
     Dosage: 1UNIT IN THE MORNING
     Route: 048
  3. MONICOR [Concomitant]
     Indication: CARDIAC FAILURE
     Dosage: 40MG AT NIGHT
     Route: 048
  4. ALPRAZOLAM [Concomitant]
     Dosage: .25MG AT NIGHT
     Route: 065
  5. FUROSEMIDE [Concomitant]
     Indication: HYPERTENSION
     Dosage: 40MG PER DAY
     Route: 048
  6. KARDEGIC [Suspect]
     Indication: CARDIAC FAILURE
     Dosage: 75MG PER DAY
     Route: 048
     Dates: end: 20120418
  7. SPIRONOLACTONE [Concomitant]
     Indication: HYPERTENSION
     Dosage: 50MG ALTERNATE DAYS
     Route: 048
  8. ARIXTRA [Suspect]
     Indication: PULMONARY EMBOLISM
     Dosage: 7.5MG PER DAY
     Route: 058
     Dates: start: 20120407, end: 20120418

REACTIONS (12)
  - GASTRIC ULCER HAEMORRHAGE [None]
  - HAEMORRHAGIC ANAEMIA [None]
  - PALLOR [None]
  - DISTURBANCE IN ATTENTION [None]
  - AKINESIA [None]
  - MYOCARDIAL INFARCTION [None]
  - CARDIAC FAILURE [None]
  - CHEST PAIN [None]
  - HAEMATEMESIS [None]
  - LEFT VENTRICULAR DYSFUNCTION [None]
  - ATRIOVENTRICULAR BLOCK SECOND DEGREE [None]
  - BLOOD PRESSURE DECREASED [None]
